FAERS Safety Report 20459855 (Version 4)
Quarter: 2023Q1

REPORT INFORMATION
  Report Type: Spontaneous
  Country: GB (occurrence: None)
  Receive Date: 20220211
  Receipt Date: 20230217
  Transmission Date: 20230417
  Serious: No
  Sender: FDA-Public Use
  Company Number: GB-ROCHE-3022523

PATIENT
  Sex: Female

DRUGS (3)
  1. OCRELIZUMAB [Suspect]
     Active Substance: OCRELIZUMAB
     Indication: Relapsing multiple sclerosis
     Route: 041
     Dates: start: 2021
  2. OCRELIZUMAB [Suspect]
     Active Substance: OCRELIZUMAB
     Route: 041
  3. OCRELIZUMAB [Suspect]
     Active Substance: OCRELIZUMAB
     Route: 041

REACTIONS (4)
  - COVID-19 [Recovered/Resolved]
  - Fatigue [Not Recovered/Not Resolved]
  - Pain [Not Recovered/Not Resolved]
  - Iron deficiency [Not Recovered/Not Resolved]

NARRATIVE: CASE EVENT DATE: 20220101
